FAERS Safety Report 7458078-7 (Version None)
Quarter: 2011Q2

REPORT INFORMATION
  Report Type: 
  Country: None (occurrence: None)
  Receive Date: 20110503
  Receipt Date: 20110503
  Transmission Date: 20111010
  Serious: No
  Sender: FDA-Public Use
  Company Number: None

PATIENT
  Age: 61 Year
  Sex: Male
  Weight: 91 kg

DRUGS (2)
  1. METOCLOPRAMIDE [Suspect]
     Dosage: 5 MG ONCE IV
     Route: 042
     Dates: start: 20110407, end: 20110407
  2. PIPERACILLIN AND TAZOBACTAM [Suspect]
     Dosage: 2.25GM QID IV
     Route: 042
     Dates: start: 20110331, end: 20110407

REACTIONS (10)
  - GLOMERULAR FILTRATION RATE DECREASED [None]
  - NAUSEA [None]
  - TREMOR [None]
  - BLOOD UREA INCREASED [None]
  - BLOOD CREATININE INCREASED [None]
  - CONVULSION [None]
  - POST PROCEDURAL COMPLICATION [None]
  - CONFUSIONAL STATE [None]
  - VOMITING [None]
  - UNRESPONSIVE TO STIMULI [None]
